FAERS Safety Report 5209126-6 (Version None)
Quarter: 2007Q1

REPORT INFORMATION
  Report Type: 
  Country: None (occurrence: None)
  Receive Date: 20070116
  Receipt Date: 20070108
  Transmission Date: 20070707
  Serious: Yes (Hospitalization)
  Sender: FDA-Public Use
  Company Number: US-JNJFOC-20061103550

PATIENT
  Sex: Male
  Weight: 136.08 kg

DRUGS (6)
  1. REMICADE [Suspect]
     Route: 042
  2. REMICADE [Suspect]
     Indication: CROHN'S DISEASE
     Route: 042
  3. FOLIC ACID [Concomitant]
  4. MULTIVIT [Concomitant]
  5. PREDNISONE TAB [Concomitant]
     Indication: CROHN'S DISEASE
  6. PROTONIX [Concomitant]

REACTIONS (1)
  - CENTRAL NERVOUS SYSTEM INFLAMMATION [None]
